FAERS Safety Report 18811743 (Version 3)
Quarter: 2021Q2

REPORT INFORMATION
  Report Type: Other
  Country: FR (occurrence: FR)
  Receive Date: 20210129
  Receipt Date: 20210622
  Transmission Date: 20210717
  Serious: Yes (Other)
  Sender: FDA-Public Use
  Company Number: FR-ROCHE-2751643

PATIENT
  Age: 70 Year
  Sex: Male
  Weight: 58 kg

DRUGS (47)
  1. ATEZOLIZUMAB. [Suspect]
     Active Substance: ATEZOLIZUMAB
     Route: 041
     Dates: start: 20200710
  2. ATEZOLIZUMAB. [Suspect]
     Active Substance: ATEZOLIZUMAB
     Route: 041
     Dates: start: 20200214
  3. ATEZOLIZUMAB. [Suspect]
     Active Substance: ATEZOLIZUMAB
     Route: 041
     Dates: start: 20201221
  4. ATEZOLIZUMAB. [Suspect]
     Active Substance: ATEZOLIZUMAB
     Route: 041
     Dates: start: 20201030
  5. VENTOLINE [Concomitant]
     Active Substance: ALBUTEROL
  6. DURVALUMAB. [Concomitant]
     Active Substance: DURVALUMAB
     Indication: NEOPLASM MALIGNANT
     Dosage: MEDICATION DOSE 10
  7. ATEZOLIZUMAB. [Suspect]
     Active Substance: ATEZOLIZUMAB
     Route: 041
     Dates: start: 20191104
  8. ATEZOLIZUMAB. [Suspect]
     Active Substance: ATEZOLIZUMAB
     Route: 041
     Dates: start: 20200904
  9. ATEZOLIZUMAB. [Suspect]
     Active Substance: ATEZOLIZUMAB
     Route: 041
     Dates: start: 20200612
  10. ATEZOLIZUMAB. [Suspect]
     Active Substance: ATEZOLIZUMAB
     Route: 041
     Dates: start: 20200515
  11. ATEZOLIZUMAB. [Suspect]
     Active Substance: ATEZOLIZUMAB
     Route: 041
     Dates: start: 20200417
  12. LEVOFLOXACINE [Concomitant]
     Active Substance: LEVOFLOXACIN
     Dates: start: 202010, end: 202010
  13. ATEZOLIZUMAB. [Suspect]
     Active Substance: ATEZOLIZUMAB
     Route: 041
     Dates: start: 20190902
  14. TINZAPARINE SODIQUE [Concomitant]
     Active Substance: TINZAPARIN SODIUM
     Dates: start: 20181019, end: 20200130
  15. TAVANIC [Concomitant]
     Active Substance: LEVOFLOXACIN
     Dates: start: 20190916, end: 20190922
  16. TERBUTALINE [Concomitant]
     Active Substance: TERBUTALINE
     Indication: LUNG DISORDER
     Dates: start: 20200724
  17. PARACETAMOL [Concomitant]
     Active Substance: ACETAMINOPHEN
     Indication: PROPHYLAXIS
     Dates: start: 20200805, end: 20200902
  18. ATEZOLIZUMAB. [Suspect]
     Active Substance: ATEZOLIZUMAB
     Indication: NON-SMALL CELL LUNG CANCER
     Dosage: DATE OF MOST RECENT DOSE (1680 MG) OF ATEZOLIZUMAB PRIOR TO ADVERSE EVENT ONSET: 23/NOV/2020,?DATE O
     Route: 041
     Dates: start: 20190611
  19. ATEZOLIZUMAB. [Suspect]
     Active Substance: ATEZOLIZUMAB
     Route: 041
     Dates: start: 20190701
  20. ATEZOLIZUMAB. [Suspect]
     Active Substance: ATEZOLIZUMAB
     Route: 041
     Dates: start: 20191014
  21. KARDEGIC [Concomitant]
     Active Substance: ASPIRIN DL-LYSINE
     Dates: start: 20190627
  22. ELIQUIS [Concomitant]
     Active Substance: APIXABAN
     Dates: start: 20200130, end: 20210515
  23. IPRATROPIUM [Concomitant]
     Active Substance: IPRATROPIUM
     Indication: LUNG DISORDER
     Dates: start: 20200724
  24. DICYNONE [Concomitant]
     Active Substance: ETHAMSYLATE
     Indication: LUNG DISORDER
     Dates: start: 20200728, end: 20200731
  25. VINORELBINE [Concomitant]
     Active Substance: VINORELBINE TARTRATE
     Indication: NEOPLASM MALIGNANT
     Dosage: MEDICATION DOSE 30
  26. CARBOPLATINE [Concomitant]
     Active Substance: CARBOPLATIN
     Indication: NEOPLASM MALIGNANT
     Dosage: MEDICATION DOSE 2 AND 6
  27. ATEZOLIZUMAB. [Suspect]
     Active Substance: ATEZOLIZUMAB
     Route: 041
     Dates: start: 20200306
  28. ATEZOLIZUMAB. [Suspect]
     Active Substance: ATEZOLIZUMAB
     Route: 041
     Dates: start: 20190722
  29. ATEZOLIZUMAB. [Suspect]
     Active Substance: ATEZOLIZUMAB
     Route: 041
     Dates: start: 20200904
  30. TAVANIC [Concomitant]
     Active Substance: LEVOFLOXACIN
     Indication: BRONCHITIS
     Dates: start: 201912, end: 20200111
  31. EXACYL [Concomitant]
     Active Substance: TRANEXAMIC ACID
     Indication: LUNG DISORDER
     Dates: start: 20200727, end: 20200731
  32. CISPLATINE [Concomitant]
     Active Substance: CISPLATIN
     Indication: NEOPLASM MALIGNANT
     Dosage: MEDICATION DOSE 80
  33. ATEZOLIZUMAB. [Suspect]
     Active Substance: ATEZOLIZUMAB
     Route: 041
     Dates: start: 20191216
  34. ATEZOLIZUMAB. [Suspect]
     Active Substance: ATEZOLIZUMAB
     Route: 041
     Dates: start: 20191125
  35. ALLOPURINOL. [Concomitant]
     Active Substance: ALLOPURINOL
  36. LYRICA [Concomitant]
     Active Substance: PREGABALIN
     Dates: start: 20190510
  37. SERETIDE [Concomitant]
     Active Substance: FLUTICASONE PROPIONATE\SALMETEROL XINAFOATE
  38. PACLITAXEL. [Concomitant]
     Active Substance: PACLITAXEL
     Indication: NEOPLASM MALIGNANT
     Dosage: MEDICATION DOSE 45 AND 90
  39. ATEZOLIZUMAB. [Suspect]
     Active Substance: ATEZOLIZUMAB
     Route: 041
     Dates: start: 20190812
  40. ATEZOLIZUMAB. [Suspect]
     Active Substance: ATEZOLIZUMAB
     Route: 041
     Dates: start: 20190923
  41. OXYNORM [Concomitant]
     Active Substance: OXYCODONE HYDROCHLORIDE
     Dates: start: 201911
  42. OXYCONTIN [Concomitant]
     Active Substance: OXYCODONE HYDROCHLORIDE
     Dates: start: 201911
  43. CEFTRIAXONE. [Concomitant]
     Active Substance: CEFTRIAXONE
     Dates: start: 20200723, end: 20200729
  44. MAGNESIUM WITH VITAMIN B6 [Concomitant]
     Dates: start: 20190916
  45. ATEZOLIZUMAB. [Suspect]
     Active Substance: ATEZOLIZUMAB
     Route: 041
     Dates: start: 20200106
  46. ATEZOLIZUMAB. [Suspect]
     Active Substance: ATEZOLIZUMAB
     Route: 041
     Dates: start: 20201123
  47. ATEZOLIZUMAB. [Suspect]
     Active Substance: ATEZOLIZUMAB
     Route: 041
     Dates: start: 20200327

REACTIONS (2)
  - Hepatic cytolysis [Recovered/Resolved]
  - Cholestasis [Recovered/Resolved]

NARRATIVE: CASE EVENT DATE: 20200930
